FAERS Safety Report 24598779 (Version 1)
Quarter: 2024Q4

REPORT INFORMATION
  Report Type: Spontaneous
  Country: US (occurrence: US)
  Receive Date: 20241110
  Receipt Date: 20241110
  Transmission Date: 20250115
  Serious: No
  Sender: SANOFI AVENTIS
  Company Number: US-SA-2024SA314068

PATIENT
  Age: 65 Year
  Sex: Female

DRUGS (1)
  1. DUPIXENT [Suspect]
     Active Substance: DUPILUMAB
     Indication: Product used for unknown indication
     Dosage: UNK
     Route: 058
     Dates: end: 2019

REACTIONS (5)
  - Pollakiuria [Unknown]
  - Anal incontinence [Unknown]
  - Frustration tolerance decreased [Unknown]
  - Vision blurred [Unknown]
  - Hypersensitivity [Unknown]
